FAERS Safety Report 21816763 (Version 1)
Quarter: 2023Q1

REPORT INFORMATION
  Report Type: Report from Study
  Country: US (occurrence: US)
  Receive Date: 20230104
  Receipt Date: 20230104
  Transmission Date: 20230418
  Serious: Yes (Hospitalization)
  Sender: FDA-Public Use
  Company Number: US-SERVIER-S22013205

PATIENT

DRUGS (7)
  1. PEGASPARGASE [Suspect]
     Active Substance: PEGASPARGASE
     Indication: B precursor type acute leukaemia
     Dosage: 2500IU/M2, ON D15, D43
     Route: 042
  2. RUXOLITINIB [Suspect]
     Active Substance: RUXOLITINIB
     Indication: B precursor type acute leukaemia
     Dosage: UNK, FROM D1 TO D14, FROM D29 TO D42
     Route: 048
  3. CYCLOPHOSPHAMIDE [Suspect]
     Active Substance: CYCLOPHOSPHAMIDE
     Indication: B precursor type acute leukaemia
     Dosage: 1000 MG/M2 ON D1, D29
     Route: 042
  4. CYTARABINE [Suspect]
     Active Substance: CYTARABINE
     Indication: B precursor type acute leukaemia
     Dosage: 75 MG/M2, ON DAYS 1-4, 8-11, 29-32, 36-39
     Route: 042
  5. METHOTREXATE [Suspect]
     Active Substance: METHOTREXATE
     Indication: B precursor type acute leukaemia
     Dosage: 15 MG, 1X/WEEK, ON D1, D8, D15, D22
     Route: 037
  6. MERCAPTOPURINE [Suspect]
     Active Substance: MERCAPTOPURINE
     Indication: B precursor type acute leukaemia
     Dosage: 60 MG/M2 ON D1-D14, D29-D42
     Route: 048
  7. VINCRISTINE [Suspect]
     Active Substance: VINCRISTINE
     Indication: B precursor type acute leukaemia
     Dosage: 1.5 MG/M2, 1X/WEEK, ON D15, D22, D43, D50
     Route: 042

REACTIONS (1)
  - Myalgia [Recovered/Resolved]

NARRATIVE: CASE EVENT DATE: 20221130
